FAERS Safety Report 12071662 (Version 2)
Quarter: 2016Q1

REPORT INFORMATION
  Report Type: Spontaneous
  Country: FR (occurrence: FR)
  Receive Date: 20160212
  Receipt Date: 20160322
  Transmission Date: 20160526
  Serious: Yes (Other)
  Sender: FDA-Public Use
  Company Number: FR-AMGEN-FRASP2016015909

PATIENT
  Age: 70 Year
  Sex: Male
  Weight: 80 kg

DRUGS (5)
  1. KARDEGIC [Concomitant]
     Active Substance: ASPIRIN LYSINE
     Indication: ANGINA PECTORIS
     Dosage: 1 DF, 1X/DAY
     Route: 048
  2. ENBREL [Suspect]
     Active Substance: ETANERCEPT
     Indication: ANKYLOSING SPONDYLITIS
     Dosage: 50 MG EVERY OTHER WEEK
     Route: 058
     Dates: start: 200407, end: 20151125
  3. PRAVASTATIN [Concomitant]
     Active Substance: PRAVASTATIN\PRAVASTATIN SODIUM
     Indication: DYSLIPIDAEMIA
     Dosage: 1 DF, 1X/DAY
     Route: 048
  4. CORVASAL                           /00547101/ [Concomitant]
     Active Substance: MOLSIDOMINE
     Indication: ANGINA PECTORIS
     Dosage: 1 DF, 3X/DAY
     Route: 048
  5. ISOPTINE [Concomitant]
     Active Substance: VERAPAMIL HYDROCHLORIDE
     Indication: ANGINA PECTORIS
     Dosage: 1 DF, 1X/DAY
     Route: 048

REACTIONS (2)
  - Iron deficiency anaemia [Recovering/Resolving]
  - Colon cancer [Recovering/Resolving]

NARRATIVE: CASE EVENT DATE: 201511
